FAERS Safety Report 4947382-X (Version None)
Quarter: 2006Q1

REPORT INFORMATION
  Report Type: 
  Country: None (occurrence: None)
  Receive Date: 20060317
  Receipt Date: 20060307
  Transmission Date: 20060701
  Serious: Yes (Other)
  Sender: FDA-Public Use
  Company Number: US-MERCK-0603USA01221

PATIENT
  Age: 77 Year
  Sex: Male

DRUGS (5)
  1. PROSCAR [Suspect]
     Indication: DYSURIA
     Route: 048
     Dates: start: 20060126
  2. AGGRENOX [Concomitant]
     Route: 065
  3. PILOCARPINE [Concomitant]
     Route: 065
  4. RHINOCORT [Concomitant]
     Route: 065
  5. COZAAR [Concomitant]
     Route: 048

REACTIONS (2)
  - OFF LABEL USE [None]
  - PURPURA [None]
